FAERS Safety Report 15197159 (Version 1)
Quarter: 2018Q3

REPORT INFORMATION
  Report Type: Spontaneous
  Country: ES (occurrence: ES)
  Receive Date: 20180725
  Receipt Date: 20180725
  Transmission Date: 20181010
  Serious: Yes (Hospitalization, Other)
  Sender: FDA-Public Use
  Company Number: ES-ALEXION-A201809369

PATIENT
  Age: 38 Year
  Sex: Male

DRUGS (2)
  1. SOLIRIS [Suspect]
     Active Substance: ECULIZUMAB
     Indication: PAROXYSMAL NOCTURNAL HAEMOGLOBINURIA
     Dosage: UNK
     Route: 065
     Dates: start: 201312
  2. ACENOCOUMAROL [Concomitant]
     Active Substance: ACENOCOUMAROL
     Indication: THROMBOSIS
     Dosage: UNK
     Route: 065
     Dates: start: 201301

REACTIONS (4)
  - Haemolysis [Unknown]
  - Blood lactate dehydrogenase increased [Recovered/Resolved]
  - Infection [Unknown]
  - Abscess limb [Recovered/Resolved]
